FAERS Safety Report 9729274 (Version 2)
Quarter: 2013Q4

REPORT INFORMATION
  Report Type: Spontaneous
  Country: AT (occurrence: AT)
  Receive Date: 20131204
  Receipt Date: 20131213
  Transmission Date: 20140711
  Serious: Yes (Death, Life-Threatening)
  Sender: FDA-Public Use
  Company Number: AT-BRISTOL-MYERS SQUIBB COMPANY-19869908

PATIENT
  Age: 67 Year
  Sex: Female
  Weight: 62 kg

DRUGS (4)
  1. ERBITUX SOLN FOR INF [Suspect]
     Indication: TONSIL CANCER
     Dosage: :5MG/100ML(655MG)
     Route: 042
     Dates: start: 20131126, end: 20131126
  2. ERBITUX SOLN FOR INF [Suspect]
     Indication: CHEMOTHERAPY
     Dosage: :5MG/100ML(655MG)
     Route: 042
     Dates: start: 20131126, end: 20131126
  3. RANITIDINE [Concomitant]
     Indication: PREMEDICATION
     Route: 042
     Dates: start: 20131126
  4. RANITIDINE [Concomitant]
     Indication: PROPHYLAXIS
     Route: 042
     Dates: start: 20131126

REACTIONS (1)
  - Anaphylactic reaction [Fatal]
